FAERS Safety Report 20824189 (Version 1)
Quarter: 2022Q2

REPORT INFORMATION
  Report Type: Spontaneous
  Country: US (occurrence: US)
  Receive Date: 20220513
  Receipt Date: 20220513
  Transmission Date: 20220721
  Serious: Yes (Hospitalization, Other)
  Sender: FDA-Public Use
  Company Number: US-APOTEX-2022AP007511

PATIENT
  Age: 53 Year
  Sex: Male

DRUGS (1)
  1. ACETAMINOPHEN [Suspect]
     Active Substance: ACETAMINOPHEN
     Indication: Product used for unknown indication
     Dosage: 100 GRAM
     Route: 048

REACTIONS (3)
  - Overdose [Recovered/Resolved]
  - Metabolic acidosis [Recovered/Resolved]
  - Hepatotoxicity [Recovered/Resolved]
